FAERS Safety Report 10555478 (Version 1)
Quarter: 2014Q4

REPORT INFORMATION
  Report Type: Report from Study
  Country: US (occurrence: US)
  Receive Date: 20141030
  Receipt Date: 20141030
  Transmission Date: 20150529
  Serious: Yes (Hospitalization)
  Sender: FDA-Public Use
  Company Number: US-ABBVIE-14P-163-1299231-00

PATIENT
  Age: 44 Year
  Sex: Female

DRUGS (1)
  1. HUMIRA [Suspect]
     Active Substance: ADALIMUMAB
     Indication: CROHN^S DISEASE
     Route: 065
     Dates: start: 20140728, end: 20141006

REACTIONS (3)
  - Haemorrhage [Recovering/Resolving]
  - Unevaluable event [Recovering/Resolving]
  - Haemoglobin abnormal [Recovering/Resolving]

NARRATIVE: CASE EVENT DATE: 20141015
